FAERS Safety Report 9904376 (Version 1)
Quarter: 2014Q1

REPORT INFORMATION
  Report Type: Spontaneous
  Country: US (occurrence: US)
  Receive Date: 20140218
  Receipt Date: 20140218
  Transmission Date: 20141002
  Serious: No
  Sender: FDA-Public Use
  Company Number: US-PFIZER INC-2014043728

PATIENT
  Age: 63 Year
  Sex: 0

DRUGS (11)
  1. LYRICA [Suspect]
     Dosage: 50 MG, 2X/DAY
  2. DETROL [Suspect]
     Dosage: UNK
  3. NORVASC [Suspect]
     Dosage: UNK
  4. EFFEXOR [Suspect]
     Dosage: UNK
  5. LEVOXYL [Suspect]
     Dosage: UNK
  6. NEURONTIN [Suspect]
     Dosage: UNK
  7. EFFEXOR XR [Suspect]
     Dosage: UNK
  8. ASA [Suspect]
     Dosage: UNK
  9. ZETIA [Suspect]
     Dosage: UNK
  10. SAVELLA [Suspect]
     Dosage: UNK
  11. ATACAND [Suspect]
     Dosage: UNK

REACTIONS (1)
  - Drug hypersensitivity [Unknown]
